FAERS Safety Report 19361920 (Version 1)
Quarter: 2021Q2

REPORT INFORMATION
  Report Type: Spontaneous
  Country: US (occurrence: US)
  Receive Date: 20210601
  Receipt Date: 20210601
  Transmission Date: 20210717
  Serious: No
  Sender: FDA-Public Use
  Company Number: US-IGSA-BIG0014613

PATIENT
  Age: 52 Year
  Sex: Female
  Weight: 61.2 kg

DRUGS (11)
  1. PROBIOTIC 10 [Concomitant]
     Active Substance: DIETARY SUPPLEMENT\PROBIOTICS
  2. GAMUNEX?C [Suspect]
     Active Substance: HUMAN IMMUNOGLOBULIN G
     Dosage: 40 MILLIGRAM, UNKNOWN
     Dates: start: 20210517
  3. FIRDAPSE [Concomitant]
     Active Substance: AMIFAMPRIDINE PHOSPHATE
  4. ESTRADIOL. [Concomitant]
     Active Substance: ESTRADIOL
  5. GAMUNEX?C [Suspect]
     Active Substance: HUMAN IMMUNOGLOBULIN G
     Dosage: 20 MILLIGRAM, UNKNOWN
     Dates: start: 20210517
  6. MESTINON [Concomitant]
     Active Substance: PYRIDOSTIGMINE BROMIDE
  7. GAMUNEX?C [Suspect]
     Active Substance: HUMAN IMMUNOGLOBULIN G
     Indication: MYASTHENIC SYNDROME
     Dosage: 40 MILLIGRAM, UNKNOWN
     Dates: start: 20210517
  8. VITAMIN D NOS [Concomitant]
     Active Substance: VITAMIN D NOS
  9. GAMUNEX?C [Suspect]
     Active Substance: HUMAN IMMUNOGLOBULIN G
     Dosage: UNK, UNKNOWN
     Dates: start: 2019
  10. PROVIGIL [CHORIONIC GONADOTROPHIN] [Concomitant]
     Active Substance: GONADOTROPHIN, CHORIONIC
  11. FOLIC ACID;IRON [Concomitant]

REACTIONS (1)
  - Rash [Recovered/Resolved]

NARRATIVE: CASE EVENT DATE: 20210517
